FAERS Safety Report 15302303 (Version 1)
Quarter: 2018Q3

REPORT INFORMATION
  Report Type: Spontaneous
  Country: US (occurrence: US)
  Receive Date: 20180821
  Receipt Date: 20180821
  Transmission Date: 20181010
  Serious: Yes (Other)
  Sender: FDA-Public Use
  Company Number: PHHY2018US072705

PATIENT
  Age: 57 Year
  Sex: Female

DRUGS (2)
  1. TRIAMCINOLONE ACETONIDE. [Suspect]
     Active Substance: TRIAMCINOLONE ACETONIDE
     Indication: ACUTE ZONAL OCCULT OUTER RETINOPATHY
     Dosage: UNK
     Route: 031
  2. PREDNISONE. [Concomitant]
     Active Substance: PREDNISONE
     Indication: ACUTE ZONAL OCCULT OUTER RETINOPATHY
     Dosage: 60 MG, QD
     Route: 065

REACTIONS (3)
  - Chorioretinopathy [Recovered/Resolved]
  - Acute zonal occult outer retinopathy [Unknown]
  - Disease recurrence [Unknown]
